FAERS Safety Report 24656259 (Version 1)
Quarter: 2024Q4

REPORT INFORMATION
  Report Type: Report from Study
  Country: US (occurrence: US)
  Receive Date: 20241124
  Receipt Date: 20241124
  Transmission Date: 20250115
  Serious: Yes (Death, Other)
  Sender: ALEXION PHARMACEUTICALS
  Company Number: US-AstraZeneca-CH-00752310A

PATIENT

DRUGS (6)
  1. TICAGRELOR [Suspect]
     Active Substance: TICAGRELOR
     Dosage: 60 MILLIGRAM
  2. TICAGRELOR [Suspect]
     Active Substance: TICAGRELOR
     Dosage: 60 MILLIGRAM
  3. TICAGRELOR [Suspect]
     Active Substance: TICAGRELOR
     Dosage: 60 MILLIGRAM
  4. TICAGRELOR [Suspect]
     Active Substance: TICAGRELOR
     Dosage: 60 MILLIGRAM
  5. TICAGRELOR [Suspect]
     Active Substance: TICAGRELOR
     Dosage: 90 MILLIGRAM
  6. TICAGRELOR [Suspect]
     Active Substance: TICAGRELOR
     Dosage: 90 MILLIGRAM

REACTIONS (3)
  - Death [Fatal]
  - Myocardial infarction [Unknown]
  - Metastases to central nervous system [Unknown]
